FAERS Safety Report 6752607-4 (Version None)
Quarter: 2010Q2

REPORT INFORMATION
  Report Type: 
  Country: None (occurrence: None)
  Receive Date: 20100602
  Receipt Date: 20100526
  Transmission Date: 20101027
  Serious: Yes (Hospitalization)
  Sender: FDA-Public Use
  Company Number: US-GILEAD-2010-0029432

PATIENT
  Sex: Female
  Weight: 65.83 kg

DRUGS (12)
  1. LETAIRIS [Suspect]
     Indication: PULMONARY ARTERIAL HYPERTENSION
     Route: 048
     Dates: start: 20100125
  2. REVATIO [Concomitant]
  3. COUMADIN [Concomitant]
  4. LOVENOX [Concomitant]
  5. FUROSEMIDE [Concomitant]
  6. TRIAMTERENE AND HYDROCHLOROTHIAZIDE [Concomitant]
  7. CELEBREX [Concomitant]
  8. PREDNISONE [Concomitant]
  9. GABAPENTIN [Concomitant]
  10. CEPHALEXIN [Concomitant]
  11. FOLIC ACID [Concomitant]
  12. SULFASALAZINE [Concomitant]

REACTIONS (2)
  - CARDIAC DISORDER [None]
  - LUNG DISORDER [None]
